FAERS Safety Report 8004330-6 (Version None)
Quarter: 2011Q4

REPORT INFORMATION
  Report Type: 
  Country: None (occurrence: None)
  Receive Date: 20111223
  Receipt Date: 20111220
  Transmission Date: 20120403
  Serious: No
  Sender: FDA-Public Use
  Company Number: US-BIOGENIDEC-2011BI048128

PATIENT
  Age: 58 Year
  Sex: Male

DRUGS (6)
  1. TYSABRI [Suspect]
     Indication: MULTIPLE SCLEROSIS
     Route: 042
     Dates: start: 20111219
  2. BACLOFEN [Concomitant]
     Indication: MUSCULOSKELETAL STIFFNESS
  3. BOTOX [Concomitant]
     Indication: MUSCULOSKELETAL STIFFNESS
  4. NYQUIL [Concomitant]
     Indication: NASOPHARYNGITIS
  5. TYSABRI [Suspect]
     Route: 042
     Dates: start: 20081015, end: 20110301
  6. IBUPROFEN [Concomitant]
     Indication: NASOPHARYNGITIS

REACTIONS (1)
  - NERVOUSNESS [None]
